FAERS Safety Report 4456702-4 (Version None)
Quarter: 2004Q3

REPORT INFORMATION
  Report Type: 
  Country: None (occurrence: None)
  Receive Date: 20040921
  Receipt Date: 20040907
  Transmission Date: 20050211
  Serious: No
  Sender: FDA-Public Use
  Company Number: 2004UW18846

PATIENT
  Sex: Male

DRUGS (3)
  1. SEROQUEL [Suspect]
     Dosage: 200 MG PO
     Route: 048
  2. COGENTIN [Concomitant]
  3. KLONOPIN [Concomitant]

REACTIONS (10)
  - ACCIDENT [None]
  - ARRHYTHMIA [None]
  - BRADYKINESIA [None]
  - BRADYPHRENIA [None]
  - CARDIAC MURMUR [None]
  - DIFFICULTY IN WALKING [None]
  - MUSCLE TIGHTNESS [None]
  - PANIC ATTACK [None]
  - THROAT TIGHTNESS [None]
  - TREMOR [None]
